FAERS Safety Report 9160695 (Version 1)
Quarter: 2013Q1

REPORT INFORMATION
  Report Type: Spontaneous
  Country: US (occurrence: None)
  Receive Date: 20130215
  Receipt Date: 20130215
  Transmission Date: 20140127
  Serious: Yes (Other)
  Sender: FDA-Public Use
  Company Number: VER-2013-00044

PATIENT
  Age: 48 Year
  Sex: Male
  Weight: 124.74 kg

DRUGS (6)
  1. CYCLOSET [Suspect]
     Dosage: 4.8 MG (0.8 MG,6 IN 1 D),ORAL
     Dates: start: 201205, end: 20121213
  2. METFORMIN (METFORMIN) [Concomitant]
  3. GLYBURIDE (GLIBENCLAMIDE) [Concomitant]
  4. COZAAR (LOSARTAN POTASSIUM) [Concomitant]
  5. BYETTA (EXENATIDE) [Concomitant]
  6. ACTOS (PIOGLITAZONE HYDROCHLORIDE) [Concomitant]

REACTIONS (4)
  - Muscle rigidity [None]
  - Tremor [None]
  - Blepharospasm [None]
  - Parkinson^s disease [None]
